FAERS Safety Report 18297002 (Version 2)
Quarter: 2020Q4

REPORT INFORMATION
  Report Type: Spontaneous
  Country: FR (occurrence: FR)
  Receive Date: 20200922
  Receipt Date: 20201001
  Transmission Date: 20210113
  Serious: Yes (Other)
  Sender: FDA-Public Use
  Company Number: FR-JNJFOC-20200921511

PATIENT
  Age: 46 Year
  Sex: Male
  Weight: 75 kg

DRUGS (31)
  1. FLIXABI [Suspect]
     Active Substance: INFLIXIMAB
     Route: 042
     Dates: start: 20180601, end: 20180601
  2. KETOPROFENE [Concomitant]
     Active Substance: KETOPROFEN
     Dosage: 100 MG / 4 ML
     Route: 042
     Dates: start: 20181008, end: 20181009
  3. TRAMADOL. [Concomitant]
     Active Substance: TRAMADOL
     Indication: PRODUCT USED FOR UNKNOWN INDICATION
     Dosage: 2 ML SOL INJ AMP0 TO 4 AMPOULES PER DAY IF NEEDED, 1 AMPOULE MAXIMUM PER INTAKE
     Route: 042
     Dates: start: 20181008, end: 20181009
  4. SODIUM CHLORIDE. [Concomitant]
     Active Substance: SODIUM CHLORIDE
     Indication: PRODUCT USED FOR UNKNOWN INDICATION
     Dosage: SODIUM CHLORIDE AGUETTANT 0.9 PERCENT, INJECTABLE SOLUTION FOR IV INFUSION, ONE BOTTLE PER DAY  ON 2
     Route: 042
     Dates: start: 20180504, end: 20180504
  5. OFLOXACINE [Concomitant]
     Active Substance: OFLOXACIN
     Indication: PRODUCT USED FOR UNKNOWN INDICATION
     Dosage: ONE TABLET IN THE MORNING AND EVENING FOR 4 DAYS
     Route: 002
     Dates: start: 20181009, end: 20181010
  6. FLIXABI [Suspect]
     Active Substance: INFLIXIMAB
     Indication: ANKYLOSING SPONDYLITIS
     Route: 041
     Dates: start: 2018, end: 20181221
  7. PANTOPRAZOLE [Concomitant]
     Active Substance: PANTOPRAZOLE
     Indication: PRODUCT USED FOR UNKNOWN INDICATION
     Route: 042
     Dates: start: 20181008, end: 20181009
  8. PARACETAMOL [Concomitant]
     Active Substance: ACETAMINOPHEN
     Indication: PRODUCT USED FOR UNKNOWN INDICATION
     Dosage: 100 ML SOL INJ POUCH
     Route: 042
     Dates: start: 20181008, end: 20181009
  9. PHLOROGLUCINOL [Concomitant]
     Active Substance: PHLOROGLUCINOL
     Indication: PRODUCT USED FOR UNKNOWN INDICATION
     Dosage: 1 TO 2 TABLETS IF NEEDED
     Route: 002
     Dates: start: 20181009, end: 20181010
  10. FLIXABI [Suspect]
     Active Substance: INFLIXIMAB
     Route: 042
     Dates: start: 20181109, end: 20181109
  11. FLIXABI [Suspect]
     Active Substance: INFLIXIMAB
     Route: 042
     Dates: start: 20180504, end: 20180504
  12. FLIXABI [Suspect]
     Active Substance: INFLIXIMAB
     Route: 042
     Dates: start: 20180420, end: 20180420
  13. DOLIPRANE [Concomitant]
     Active Substance: ACETAMINOPHEN
     Dosage: 1 SACHET IF NEEDED
     Route: 002
     Dates: start: 20181005, end: 20181008
  14. NICOPATCH [Concomitant]
     Active Substance: NICOTINE
     Indication: PRODUCT USED FOR UNKNOWN INDICATION
     Dosage: 7 MG / 24 H PATCH 7MG/24H 10CM2 (X28), 1 DISPOSITIVE AT MIDDAY
     Route: 062
     Dates: start: 20180307, end: 20180307
  15. MORPHINE CHL [Concomitant]
     Dosage: 1 ML SOL INJ AMP
     Route: 042
     Dates: start: 20181008, end: 20181009
  16. AMOXICILLINE / AC CLAVULANIQUE [Concomitant]
     Indication: PRODUCT USED FOR UNKNOWN INDICATION
     Dosage: 1 SACHET DOSE IN THE MORNING, MIDDAY AND EVENING
     Route: 002
     Dates: start: 20181009, end: 20181010
  17. KETOPROFENE [Concomitant]
     Active Substance: KETOPROFEN
     Indication: PRODUCT USED FOR UNKNOWN INDICATION
     Dosage: 100 MG / 4 ML SOL INJ AMP, ONE AMPULE PER DAY
     Route: 042
     Dates: start: 20181221, end: 20181221
  18. SODIUM CHLORIDE. [Concomitant]
     Active Substance: SODIUM CHLORIDE
     Dosage: SODIUM CHLORIDE AGUETTANT 0.9 PERCENT, INJECTABLE SOLUTION FOR IV INFUSION, ONE BOTTLE PER DAY  ON 2
     Route: 042
     Dates: start: 20180420, end: 20180420
  19. NICORETTE [Concomitant]
     Active Substance: NICOTINE
     Indication: PRODUCT USED FOR UNKNOWN INDICATION
     Dosage: 2MG TUBE 80 SUCKABLE TABLETS1 TABLET IN THE MORNING, AT MIDDAY, THE EVENING AND AT NIGHT
     Route: 002
     Dates: start: 20180221, end: 20180221
  20. FRAGMINE [Concomitant]
     Active Substance: DALTEPARIN SODIUM
     Dosage: 2 500 UI / 0.2 ML SOL INJ SYR, ONE SYRINGE PER DAY
     Route: 058
     Dates: start: 20181008, end: 20181009
  21. NICOPATCH [Concomitant]
     Active Substance: NICOTINE
     Dosage: 21 G / 24 H PATCH, 1 DISPOSITIVE AT MIDDAY
     Route: 062
     Dates: start: 20180221, end: 20180221
  22. MORPHINE CHL [Concomitant]
     Indication: PRODUCT USED FOR UNKNOWN INDICATION
     Dosage: 1 ML SOL INJ AMP0 TO 10 MG
     Route: 058
     Dates: start: 20181008, end: 20181009
  23. OFLOXACINE [Concomitant]
     Active Substance: OFLOXACIN
     Dosage: 200 MG / 40 ML SOL INJ POUCH, ONE POUCH TWO TIMES A DAY
     Route: 042
     Dates: start: 20181005, end: 20181009
  24. REMICADE [Suspect]
     Active Substance: INFLIXIMAB
     Indication: SPONDYLITIS
     Route: 042
  25. DOLIPRANE [Concomitant]
     Active Substance: ACETAMINOPHEN
     Indication: PRODUCT USED FOR UNKNOWN INDICATION
     Dosage: 1 TO 2 CAPSULES IF NEEDED FOR ONE WEEK
     Route: 002
     Dates: start: 20181009, end: 20181010
  26. FLIXABI [Suspect]
     Active Substance: INFLIXIMAB
     Indication: SPONDYLITIS
     Route: 042
     Dates: start: 20180927, end: 20180928
  27. AUGMENTIN [Concomitant]
     Active Substance: AMOXICILLIN\CLAVULANATE POTASSIUM
     Indication: PRODUCT USED FOR UNKNOWN INDICATION
     Dosage: 1 G / 200 MG PDR INJ FL, ONE BOTTLE
     Route: 042
     Dates: start: 20181005, end: 20181009
  28. FRAGMINE [Concomitant]
     Active Substance: DALTEPARIN SODIUM
     Indication: PRODUCT USED FOR UNKNOWN INDICATION
     Dosage: 5 000 UI / 0.2 ML SOL INJ SER, ONE SYRINGE AT 6 PM
     Route: 058
     Dates: start: 20181009, end: 20181010
  29. NICOPATCH [Concomitant]
     Active Substance: NICOTINE
     Dosage: 14 G / 24 H PATCH, 1 DISPOSITIVE AT MIDDAY
     Route: 062
     Dates: start: 20180228, end: 20180228
  30. NEFOPAM [Concomitant]
     Active Substance: NEFOPAM
     Indication: PRODUCT USED FOR UNKNOWN INDICATION
     Dosage: 2 ML SOL INJ AMP
     Route: 042
     Dates: start: 20181008, end: 20181009
  31. DROPERIDOL. [Concomitant]
     Active Substance: DROPERIDOL
     Indication: PRODUCT USED FOR UNKNOWN INDICATION
     Dosage: 1 ML SOL INJ AMP)
     Route: 065
     Dates: start: 20181008, end: 20181009

REACTIONS (17)
  - Polyarthritis [Unknown]
  - Hyperleukocytosis [Unknown]
  - Drug ineffective for unapproved indication [Recovered/Resolved]
  - Thrombocytosis [Unknown]
  - Prostatic calcification [Unknown]
  - Transaminases increased [Unknown]
  - Cholecystitis chronic [Recovering/Resolving]
  - Lymphadenopathy mediastinal [Unknown]
  - Chest pain [Recovered/Resolved]
  - Off label use [Unknown]
  - Inflammation [Recovering/Resolving]
  - Drug specific antibody present [Recovered/Resolved]
  - Gastrointestinal inflammation [Unknown]
  - Product use in unapproved indication [Unknown]
  - Monocytosis [Unknown]
  - Nasopharyngitis [Unknown]
  - Ankylosing spondylitis [Unknown]

NARRATIVE: CASE EVENT DATE: 20181221
